FAERS Safety Report 11143486 (Version 1)
Quarter: 2015Q2

REPORT INFORMATION
  Report Type: Spontaneous
  Country: GB (occurrence: GB)
  Receive Date: 20150526
  Receipt Date: 20150526
  Transmission Date: 20150821
  Serious: Yes (Other)
  Sender: FDA-Public Use
  Company Number: GB-ACCORD-030745

PATIENT
  Age: 83 Year
  Sex: Female

DRUGS (2)
  1. SULFASALAZINE. [Concomitant]
     Active Substance: SULFASALAZINE
  2. METHOTREXATE [Suspect]
     Active Substance: METHOTREXATE
     Indication: PRODUCT USED FOR UNKNOWN INDICATION
     Dosage: ON A FRIDAY

REACTIONS (12)
  - Pyrexia [Unknown]
  - Bone marrow failure [Unknown]
  - Contraindicated drug administered [Unknown]
  - Sepsis [Unknown]
  - Biliary colic [Unknown]
  - Lower respiratory tract infection [Unknown]
  - Pancytopenia [Unknown]
  - Abdominal pain [Unknown]
  - Liver function test abnormal [Unknown]
  - Platelet count decreased [Unknown]
  - Urinary tract infection [Unknown]
  - Vomiting [Unknown]

NARRATIVE: CASE EVENT DATE: 20140627
